FAERS Safety Report 6129825-1 (Version None)
Quarter: 2009Q1

REPORT INFORMATION
  Report Type: 
  Country: None (occurrence: None)
  Receive Date: 20090324
  Receipt Date: 20090313
  Transmission Date: 20090719
  Serious: Yes (Other)
  Sender: FDA-Public Use
  Company Number: PHHY2009GB08421

PATIENT
  Sex: Male
  Weight: 99 kg

DRUGS (7)
  1. EXELON [Suspect]
     Indication: PARKINSON'S DISEASE
     Dosage: 4.5 MG, BID
     Dates: start: 20080425, end: 20080901
  2. EXELON [Suspect]
     Indication: HALLUCINATION, VISUAL
     Dosage: 3 MG
  3. ASPIRIN [Concomitant]
     Dosage: 150 MG, QD
  4. PERINDOPRIL ERBUMINE [Concomitant]
     Dosage: 4 MG, QD
     Route: 048
  5. SIMVASTATIN [Concomitant]
     Dosage: 40 MG, BID
     Route: 048
  6. ISOSORBIDE MONONITRATE [Concomitant]
     Dosage: 20 MG, BID
     Route: 048
  7. BISOPROLOL [Concomitant]
     Dosage: 1.25 MG, QD
     Route: 048

REACTIONS (4)
  - ATRIAL FLUTTER [None]
  - ATRIOVENTRICULAR BLOCK SECOND DEGREE [None]
  - HEART RATE INCREASED [None]
  - VENTRICULAR EXTRASYSTOLES [None]
